FAERS Safety Report 14556842 (Version 1)
Quarter: 2018Q1

REPORT INFORMATION
  Report Type: Spontaneous
  Country: US (occurrence: US)
  Receive Date: 20180221
  Receipt Date: 20180221
  Transmission Date: 20180509
  Serious: Yes (Death, Hospitalization, Other)
  Sender: FDA-Public Use
  Company Number: US-AUROBINDO-AUR-APL-2018-005546

PATIENT
  Age: 15 Month
  Sex: Male

DRUGS (18)
  1. TACROLIMUS. [Suspect]
     Active Substance: TACROLIMUS
     Indication: IMMUNOSUPPRESSION
     Dosage: INITIATED POSTOPERATIVE DAY 1 TO ACHIEVE TROUGH LEVELS OF 10?12 NG/ML ()
     Route: 048
  2. PREDNISONE. [Suspect]
     Active Substance: PREDNISONE
     Dosage: 0.1 MG/KG, UNK
     Route: 048
  3. METHYLPREDNISOLONE. [Suspect]
     Active Substance: METHYLPREDNISOLONE
     Indication: IMMUNOSUPPRESSION
     Dosage: UNK
     Route: 065
  4. METHYLPREDNISOLONE. [Suspect]
     Active Substance: METHYLPREDNISOLONE
     Dosage: INITIATED INTRAOPERATIVELY ()
  5. CISPLATIN. [Concomitant]
     Active Substance: CISPLATIN
     Indication: HEPATOBLASTOMA
     Dosage: ()CYCLICAL
     Route: 065
  6. VINCRISTINE [Concomitant]
     Active Substance: VINCRISTINE
     Indication: HEPATOBLASTOMA
     Dosage: ()CYCLICAL
     Route: 065
  7. TACROLIMUS. [Suspect]
     Active Substance: TACROLIMUS
     Dosage: TACROLIMUS DOSE REDUCED TO ACHIEVE A TROUGH OF 3 TO 5 NG/ML ()
     Route: 048
  8. GANCICLOVIR. [Concomitant]
     Active Substance: GANCICLOVIR
     Dosage: ()
  9. PREDNISONE. [Suspect]
     Active Substance: PREDNISONE
     Indication: IMMUNOSUPPRESSION
     Dosage: 0.3 MG/KG, DAILY
     Route: 048
  10. PREDNISONE. [Suspect]
     Active Substance: PREDNISONE
     Dosage: 0.1 MG/KG, UNK
     Route: 048
  11. PREDNISONE. [Suspect]
     Active Substance: PREDNISONE
     Dosage: 0.3 MG/KG, UNK
     Route: 048
  12. VINCRISTINE [Concomitant]
     Active Substance: VINCRISTINE
     Dosage: ()CYCLICAL
  13. TACROLIMUS. [Suspect]
     Active Substance: TACROLIMUS
     Dosage: TACROLIMUS DOSE REDUCED TO ACHIEVE A TROUGH OF 3 TO 5 NG/ML ()
     Route: 048
  14. FLUOROURACIL. [Concomitant]
     Active Substance: FLUOROURACIL
     Indication: HEPATOBLASTOMA
     Dosage: ()CYCLICAL
     Route: 065
  15. FLUOROURACIL. [Concomitant]
     Active Substance: FLUOROURACIL
     Dosage: ()CYCLICAL
  16. TACROLIMUS. [Suspect]
     Active Substance: TACROLIMUS
     Dosage: INITIATED POSTOPERATIVE DAY 1 TO ACHIEVE TROUGH LEVELS OF 10?12 NG/ML ()
     Route: 048
  17. CISPLATIN. [Concomitant]
     Active Substance: CISPLATIN
     Dosage: ()CYCLICAL
  18. GANCICLOVIR. [Concomitant]
     Active Substance: GANCICLOVIR
     Indication: PROPHYLAXIS
     Dosage: ()
     Route: 065

REACTIONS (2)
  - Epstein-Barr viraemia [Fatal]
  - Post transplant lymphoproliferative disorder [Fatal]
